FAERS Safety Report 9880217 (Version 1)
Quarter: 2014Q1

REPORT INFORMATION
  Report Type: Spontaneous
  Country: US (occurrence: US)
  Receive Date: 20140207
  Receipt Date: 20140207
  Transmission Date: 20141002
  Serious: No
  Sender: FDA-Public Use
  Company Number: US-BIOGENIDEC-2014BI009506

PATIENT
  Sex: Male

DRUGS (7)
  1. TECFIDERA [Suspect]
     Indication: MULTIPLE SCLEROSIS
     Route: 048
     Dates: start: 201306
  2. VENLAFAXINE [Concomitant]
  3. CLONAZEPAM [Concomitant]
  4. BACLOFEN [Concomitant]
  5. TRAMADOL [Concomitant]
  6. VITAMIN D [Concomitant]
  7. AMITRIPTYLINE [Concomitant]

REACTIONS (2)
  - Mood swings [Recovered/Resolved]
  - Irritability [Recovered/Resolved]
